FAERS Safety Report 4424335-1 (Version None)
Quarter: 2004Q3

REPORT INFORMATION
  Report Type: 
  Country: None (occurrence: None)
  Receive Date: 20040715
  Receipt Date: 20040330
  Transmission Date: 20050211
  Serious: Yes (Hospitalization)
  Sender: FDA-Public Use
  Company Number: 2004206848US

PATIENT
  Age: 95 Year
  Sex: Female

DRUGS (4)
  1. CELEBREX [Suspect]
     Indication: ARTHRALGIA
     Dosage: 200 MG, QD,
     Dates: start: 20040309, end: 20040314
  2. LEVOTHYROID (LEVOTHYROXINE SODIUM) [Concomitant]
  3. ISMO [Concomitant]
  4. MULTIVITAMIN [Concomitant]

REACTIONS (2)
  - CARDIAC FAILURE CONGESTIVE [None]
  - DYSPNOEA [None]
